FAERS Safety Report 8035902-0 (Version None)
Quarter: 2012Q1

REPORT INFORMATION
  Report Type: 
  Country: None (occurrence: None)
  Receive Date: 20120111
  Receipt Date: 20120111
  Transmission Date: 20120608
  Serious: Yes (Life-Threatening, Hospitalization)
  Sender: FDA-Public Use
  Company Number: None

PATIENT
  Age: 43 Year
  Sex: Male
  Weight: 81.646 kg

DRUGS (1)
  1. ATIVAN [Suspect]
     Indication: CONVULSION
     Route: 041

REACTIONS (3)
  - PARANOIA [None]
  - APPARENT LIFE THREATENING EVENT [None]
  - BLOOD PRESSURE INCREASED [None]
